FAERS Safety Report 23149121 (Version 1)
Quarter: 2023Q4

REPORT INFORMATION
  Report Type: Spontaneous
  Country: US (occurrence: US)
  Receive Date: 20231106
  Receipt Date: 20231106
  Transmission Date: 20240110
  Serious: No
  Sender: FDA-Public Use
  Company Number: US-PARATEK PHARMACEUTICALS, INC.-2023PTK00284

PATIENT
  Sex: Male

DRUGS (2)
  1. NUZYRA [Suspect]
     Active Substance: OMADACYCLINE
     Indication: Skin bacterial infection
     Dosage: 450 MG, 1X/DAY
     Route: 048
     Dates: start: 202306, end: 202306
  2. NUZYRA [Suspect]
     Active Substance: OMADACYCLINE
     Indication: Wound
     Dosage: 300 MG, 1X/DAY DAYS 3-14
     Route: 048
     Dates: start: 202306, end: 202306

REACTIONS (4)
  - Cardiac disorder [Not Recovered/Not Resolved]
  - Gout [Not Recovered/Not Resolved]
  - Abdominal pain [Not Recovered/Not Resolved]
  - Nausea [Not Recovered/Not Resolved]

NARRATIVE: CASE EVENT DATE: 20230601
